FAERS Safety Report 4673557-3 (Version None)
Quarter: 2005Q2

REPORT INFORMATION
  Report Type: 
  Country: None (occurrence: None)
  Receive Date: 20050525
  Receipt Date: 20041112
  Transmission Date: 20051028
  Serious: Yes (Other)
  Sender: FDA-Public Use
  Company Number: PHNU2004DE03841

PATIENT
  Age: 67 Year
  Sex: Female
  Weight: 64 kg

DRUGS (3)
  1. AREDIA [Concomitant]
     Indication: PLASMACYTOMA
     Dosage: 60 MG, ONCE/SINGLE
     Route: 042
     Dates: start: 20020501, end: 20020501
  2. VINCRISTINE + ADRIAMYCIN + DEXAMETHASONE [Concomitant]
     Route: 065
     Dates: start: 20040901, end: 20040904
  3. ZOMETA [Suspect]
     Indication: PLASMACYTOMA
     Dosage: 4 MG, QMO
     Route: 042
     Dates: start: 20020601, end: 20041001

REACTIONS (4)
  - GINGIVITIS [None]
  - OSTEONECROSIS [None]
  - PAIN [None]
  - X-RAY ABNORMAL [None]
